FAERS Safety Report 9709650 (Version 3)
Quarter: 2013Q4

REPORT INFORMATION
  Report Type: Report from Study
  Country: US (occurrence: US)
  Receive Date: 20131126
  Receipt Date: 20131227
  Transmission Date: 20140711
  Serious: No
  Sender: FDA-Public Use
  Company Number: PHEH2013US023827

PATIENT
  Age: 60 Year
  Sex: Female

DRUGS (19)
  1. TASIGNA [Suspect]
     Indication: CHRONIC MYELOID LEUKAEMIA
     Dosage: 300 MG, BID
     Route: 048
     Dates: start: 201202, end: 20131122
  2. METOPROLOL SUCCINATE [Concomitant]
     Dosage: 25 MG, EVERY DAY
     Route: 048
  3. SYNTHROID [Concomitant]
     Dosage: 75 UG, UNK
     Route: 048
  4. SPIRONOLACTONE [Concomitant]
     Dosage: 25 MG, UNK
     Route: 048
  5. MONTELUKAST [Concomitant]
     Dosage: 10 MG, UNK
     Route: 048
  6. ALBUTEROL [Concomitant]
     Route: 055
  7. ALPRAZOLAM [Concomitant]
     Dosage: 1 MG, TID
     Route: 048
  8. POLYETHYLENE GLYCOL [Concomitant]
     Dosage: 17 G, UNK
     Route: 048
  9. DULOXETINE [Concomitant]
     Dosage: 60 MG, UNK
     Route: 048
  10. OXYCODONE [Concomitant]
     Dosage: 15 MG, UNK
     Route: 048
  11. LIDOCAINE [Concomitant]
     Dosage: 5 %, UNK
     Route: 061
  12. NILOTINIB [Concomitant]
     Dosage: 150 MG, UNK
     Route: 048
  13. OMEPRAZOLE [Concomitant]
     Dosage: 20 MG, UNK
     Route: 048
  14. VITAMIN D3 [Concomitant]
     Dosage: 2000 U, UNK
     Route: 048
  15. COENZYME Q10 [Concomitant]
     Dosage: 200 MG, UNK
     Route: 048
  16. METFORMIN [Concomitant]
     Route: 048
  17. CETRIZINE [Concomitant]
     Route: 048
  18. SPIRIVA [Concomitant]
  19. OXYMORPHONE [Concomitant]
     Route: 048

REACTIONS (7)
  - Faeces discoloured [Unknown]
  - Vomiting [Unknown]
  - Nausea [Unknown]
  - Malaise [Unknown]
  - Abdominal pain upper [Unknown]
  - Headache [Unknown]
  - Diarrhoea [Unknown]
